FAERS Safety Report 15603574 (Version 1)
Quarter: 2018Q4

REPORT INFORMATION
  Report Type: Report from Study
  Country: US (occurrence: US)
  Receive Date: 20181109
  Receipt Date: 20181109
  Transmission Date: 20190205
  Serious: Yes (Death, Life-Threatening, Other)
  Sender: FDA-Public Use
  Company Number: US-NAPPMUNDI-USA-2015-0145158

PATIENT
  Age: 14 Year
  Sex: Male

DRUGS (1)
  1. OXYCODONE HYDROCHLORIDE. [Suspect]
     Active Substance: OXYCODONE HYDROCHLORIDE
     Indication: PRODUCT USED FOR UNKNOWN INDICATION
     Route: 048

REACTIONS (5)
  - Unresponsive to stimuli [Unknown]
  - Multiple organ dysfunction syndrome [Fatal]
  - Apnoea [Unknown]
  - Drug abuse [Fatal]
  - Pulse absent [Unknown]

NARRATIVE: CASE EVENT DATE: 20140804
